FAERS Safety Report 16653066 (Version 2)
Quarter: 2019Q3

REPORT INFORMATION
  Report Type: Report from Study
  Country: US (occurrence: US)
  Receive Date: 20190731
  Receipt Date: 20190808
  Transmission Date: 20191004
  Serious: Yes (Hospitalization)
  Sender: FDA-Public Use
  Company Number: US-ACTELION-A-US2019-193685

PATIENT
  Sex: Female
  Weight: 54.42 kg

DRUGS (1)
  1. TRACLEER [Suspect]
     Active Substance: BOSENTAN
     Indication: PULMONARY HYPERTENSION
     Dosage: 125 MG, BID
     Route: 048

REACTIONS (4)
  - Unevaluable event [Unknown]
  - Infection [Unknown]
  - Hepatic lesion [Unknown]
  - Appendix disorder [Unknown]
